FAERS Safety Report 7807195-8 (Version None)
Quarter: 2011Q4

REPORT INFORMATION
  Report Type: 
  Country: None (occurrence: None)
  Receive Date: 20111011
  Receipt Date: 20111006
  Transmission Date: 20120403
  Serious: Yes (Death, Other)
  Sender: FDA-Public Use
  Company Number: PHHY2011AR88607

PATIENT
  Sex: Female

DRUGS (1)
  1. EXFORGE [Suspect]
     Indication: BLOOD PRESSURE
     Dosage: 160 MG VALS AND 5 MG AMLO, DAILY
     Dates: start: 20110913

REACTIONS (4)
  - OBSTRUCTIVE AIRWAYS DISORDER [None]
  - CARDIAC ARREST [None]
  - PNEUMONIA [None]
  - CARDIAC FAILURE [None]
